FAERS Safety Report 8189233-9 (Version None)
Quarter: 2012Q1

REPORT INFORMATION
  Report Type: 
  Country: None (occurrence: None)
  Receive Date: 20120306
  Receipt Date: 20120306
  Transmission Date: 20120608
  Serious: Yes (Other)
  Sender: FDA-Public Use
  Company Number: None

PATIENT
  Sex: Male
  Weight: 56.246 kg

DRUGS (2)
  1. NEULASTA [Suspect]
     Dosage: 8MG Q14D SQ
     Route: 058
     Dates: start: 20110517
  2. NEULASTA [Suspect]

REACTIONS (1)
  - OEDEMA PERIPHERAL [None]
